FAERS Safety Report 7477800-7 (Version None)
Quarter: 2011Q2

REPORT INFORMATION
  Report Type: 
  Country: None (occurrence: None)
  Receive Date: 20110513
  Receipt Date: 20110509
  Transmission Date: 20111010
  Serious: Yes (Hospitalization, Other)
  Sender: FDA-Public Use
  Company Number: US-ELI_LILLY_AND_COMPANY-US201009002175

PATIENT
  Sex: Male
  Weight: 97.506 kg

DRUGS (13)
  1. BYETTA [Suspect]
     Dosage: UNK
     Dates: start: 20061101, end: 20070719
  2. GLIPIZIDE [Concomitant]
     Dosage: 10 MG, BID
     Route: 048
  3. LISINOPRIL [Concomitant]
     Dosage: 20 MG, QD
     Route: 048
  4. PROTONIX [Concomitant]
     Dosage: 40 MG, QD
     Route: 048
  5. METFORMIN HCL [Concomitant]
     Dosage: 1000 MG, BID
     Route: 048
  6. HYDROCHLOROTHIAZIDE [Concomitant]
     Dosage: 25 MG, QD
     Route: 048
  7. OMACOR [Concomitant]
     Dosage: 2 G, BID
     Route: 048
  8. BYETTA [Suspect]
     Dosage: UNK
     Dates: start: 20070731, end: 20071101
  9. AMLODIPINE BESYLATE [Concomitant]
     Indication: HYPERTENSION
     Dosage: 2.5 MG, QD
     Route: 048
  10. AMLODIPINE BESYLATE [Concomitant]
     Dosage: 5 MG, QD
  11. FENOFIBRATE [Concomitant]
     Dosage: 145 MG, QD
     Route: 048
  12. ACTOS [Concomitant]
     Dosage: 45 MG, QD
     Route: 048
  13. COZAAR [Concomitant]
     Dosage: 100 MG, QD
     Route: 048

REACTIONS (3)
  - PANCREATITIS ACUTE [None]
  - PANCREATITIS CHRONIC [None]
  - PANCREATITIS RELAPSING [None]
